FAERS Safety Report 7985390 (Version 8)
Quarter: 2012Q4

REPORT INFORMATION
  Report Type: 
  Country: JP (occurrence: JP)
  Receive Date: 20110610
  Receipt Date: 20121004
  Transmission Date: 20130627
  Serious: Yes (Hospitalization, Other)
  Sender: FDA-Public Use
  Company Number: JP-BAYER-2011-004940

PATIENT
  Age: 65 Year
  Sex: Male

DRUGS (8)
  1. NEXAVAR [Suspect]
     Indication: HEPATIC NEOPLASM MALIGNANT
     Dosage: Daily dose 400 mg
     Route: 048
     Dates: start: 20101202
  2. NEXAVAR [Suspect]
     Indication: HEPATIC NEOPLASM MALIGNANT
     Dosage: Daily dose 800 mg
     Route: 048
     Dates: start: 20110101
  3. NEXAVAR [Suspect]
     Indication: HEPATIC NEOPLASM MALIGNANT
     Dosage: Daily dose 600 mg
     Route: 048
  4. NEXAVAR [Suspect]
     Indication: HEPATIC NEOPLASM MALIGNANT
     Dosage: Daily dose 400 mg
     Route: 048
     Dates: start: 20110215, end: 20110509
  5. COMBINATIONS OF ANTINEOPLASTIC AGENTS [Concomitant]
  6. CISPLATIN [Concomitant]
     Dosage: UNK
     Route: 013
     Dates: end: 20110405
  7. 5-FU [Concomitant]
     Dosage: UNK
     Route: 013
     Dates: end: 20110405
  8. ANTINEOPLASTIC AGENTS [Concomitant]
     Dosage: UNK
     Route: 013
     Dates: start: 20110215, end: 20110404

REACTIONS (3)
  - Hepatic artery occlusion [Recovered/Resolved]
  - Hepatic cancer [None]
  - Nausea [Unknown]
